FAERS Safety Report 5721747-0 (Version None)
Quarter: 2008Q2

REPORT INFORMATION
  Report Type: 
  Country: None (occurrence: None)
  Receive Date: 20080429
  Receipt Date: 20070406
  Transmission Date: 20081010
  Serious: Yes (Other)
  Sender: FDA-Public Use
  Company Number: US-ASTRAZENECA-2007UW06914

PATIENT

DRUGS (2)
  1. NEXIUM [Suspect]
     Route: 048
     Dates: start: 20040101
  2. BETA BLOCKER [Concomitant]

REACTIONS (1)
  - PLATELET COUNT DECREASED [None]
